FAERS Safety Report 4957303-1 (Version None)
Quarter: 2006Q1

REPORT INFORMATION
  Report Type: 
  Country: None (occurrence: None)
  Receive Date: 20060323
  Receipt Date: 20060313
  Transmission Date: 20060701
  Serious: Yes (Death, Other)
  Sender: FDA-Public Use
  Company Number: US_0507119834

PATIENT
  Age: 46 Year
  Sex: Male

DRUGS (11)
  1. ZYPREXA [Suspect]
     Indication: DEPRESSION
     Dosage: 20 MG, EACH EVENING; 15 MG, EACH EVENING; 20 MG, EACH EVENING
     Dates: end: 20001024
  2. ZYPREXA [Suspect]
     Indication: DEPRESSION
     Dosage: 20 MG, EACH EVENING; 15 MG, EACH EVENING; 20 MG, EACH EVENING
     Dates: end: 20020119
  3. ZYPREXA [Suspect]
     Indication: DEPRESSION
     Dosage: 20 MG, EACH EVENING; 15 MG, EACH EVENING; 20 MG, EACH EVENING
     Dates: start: 20020116, end: 20020930
  4. PAXIL [Concomitant]
  5. EFFEXOR [Concomitant]
  6. HALDOL SOLUTAB [Concomitant]
  7. ABILIFY [Concomitant]
  8. VICODIN [Concomitant]
  9. COGENTIN [Concomitant]
  10. GEODON [Concomitant]
  11. CELEBREX [Concomitant]

REACTIONS (14)
  - ANHEDONIA [None]
  - BACK PAIN [None]
  - BRONCHITIS [None]
  - CARDIO-RESPIRATORY ARREST [None]
  - CHRONIC OBSTRUCTIVE PULMONARY DISEASE [None]
  - DIABETES MELLITUS NON-INSULIN-DEPENDENT [None]
  - EMOTIONAL DISTRESS [None]
  - HYPERTENSION [None]
  - OEDEMA PERIPHERAL [None]
  - OVERWEIGHT [None]
  - PULMONARY OEDEMA [None]
  - SEPSIS [None]
  - THINKING ABNORMAL [None]
  - URINARY TRACT INFECTION [None]
